FAERS Safety Report 7281801-1 (Version None)
Quarter: 2011Q1

REPORT INFORMATION
  Report Type: 
  Country: None (occurrence: None)
  Receive Date: 20110208
  Receipt Date: 20100421
  Transmission Date: 20110831
  Serious: Yes (Death, Other)
  Sender: FDA-Public Use
  Company Number: US-PFIZER INC-2010051493

PATIENT
  Sex: Female

DRUGS (1)
  1. SUTENT [Suspect]
     Indication: RENAL CANCER
     Dosage: 4 WEEKS ON AND 2 WEEKS OFF
     Dates: start: 20090101, end: 20100101

REACTIONS (2)
  - PULMONARY HAEMORRHAGE [None]
  - RESPIRATORY TRACT HAEMORRHAGE [None]
